FAERS Safety Report 25958099 (Version 1)
Quarter: 2025Q4

REPORT INFORMATION
  Report Type: Report from Study
  Country: EU (occurrence: EU)
  Receive Date: 20251024
  Receipt Date: 20251024
  Transmission Date: 20260118
  Serious: Yes (Other)
  Sender: JAZZ
  Company Number: EU-PHARMAMAR-2025PM000744

PATIENT

DRUGS (1)
  1. LURBINECTEDIN [Suspect]
     Active Substance: LURBINECTEDIN
     Indication: Small cell lung cancer
     Dosage: CYCLE 1 DAY 1

REACTIONS (2)
  - Febrile bone marrow aplasia [Unknown]
  - Neutropenia [Unknown]
